FAERS Safety Report 26087233 (Version 1)
Quarter: 2025Q4

REPORT INFORMATION
  Report Type: Spontaneous
  Country: US (occurrence: None)
  Receive Date: 20251124
  Receipt Date: 20251124
  Transmission Date: 20260118
  Serious: Yes (Hospitalization)
  Sender: FDA-CTU
  Company Number: None

PATIENT
  Age: 88 Year
  Sex: Female

DRUGS (16)
  1. REPATHA [Suspect]
     Active Substance: EVOLOCUMAB
     Indication: Hyperlipidaemia
     Dosage: 140MG EVERY 2 WEEKS SUBCUTANEOUS
     Route: 058
     Dates: start: 20250804, end: 202509
  2. GABAPENTIN [Concomitant]
     Active Substance: GABAPENTIN
  3. ACETAMINOPHEN\HYDROCODONE [Concomitant]
     Active Substance: ACETAMINOPHEN\HYDROCODONE
  4. ALENDRONATE [Concomitant]
     Active Substance: ALENDRONATE SODIUM
  5. FLUOXETINE HYDROCHLORIDE [Concomitant]
     Active Substance: FLUOXETINE HYDROCHLORIDE
  6. METOPROLOL SUCCINATE [Concomitant]
     Active Substance: METOPROLOL SUCCINATE
  7. NIFEDIPINE 30MG ER (CC) TABLETS [Concomitant]
  8. PANTOPRAZOLE [Concomitant]
     Active Substance: PANTOPRAZOLE
  9. FUROSEMIDE [Concomitant]
     Active Substance: FUROSEMIDE
  10. RENA-VITE TABLETS [Concomitant]
  11. ALLOPURINOL 100MG TABLETS [Concomitant]
  12. ASPIRIN 81 MG EC LOW DOSE D/F TABS [Concomitant]
  13. DOK (DOCUSATE SODIUM) 1 00MG CAPS [Concomitant]
  14. LEVOTHYROXINE 0.075MG (75MCG) TABS [Concomitant]
  15. VITAMIN D3 1,000 UNIT TABLETS [Concomitant]
  16. LIDOCAINE 5% TOPICAL OINTMENT 30GM [Concomitant]

REACTIONS (1)
  - Dyspnoea [None]

NARRATIVE: CASE EVENT DATE: 20250901
